FAERS Safety Report 4875302-5 (Version None)
Quarter: 2006Q1

REPORT INFORMATION
  Report Type: 
  Country: None (occurrence: None)
  Receive Date: 20060109
  Receipt Date: 20051208
  Transmission Date: 20060701
  Serious: Yes (Disabling, Other)
  Sender: FDA-Public Use
  Company Number: US-MERCK-0512USA01213

PATIENT
  Age: 58 Year
  Sex: Female
  Weight: 64 kg

DRUGS (7)
  1. FOSAMAX [Suspect]
     Indication: OSTEOPENIA
     Route: 048
     Dates: start: 20030101
  2. FOSAMAX [Suspect]
     Route: 048
     Dates: end: 20051201
  3. FIORICET TABLETS [Concomitant]
     Indication: MIGRAINE
     Route: 048
     Dates: start: 19800101
  4. FIORICET TABLETS [Concomitant]
     Indication: HEADACHE
     Route: 048
     Dates: start: 19800101
  5. PHRENILIN [Concomitant]
     Indication: MIGRAINE
     Route: 048
     Dates: start: 19800101
  6. VIVELLE [Concomitant]
     Indication: OESTROGEN REPLACEMENT THERAPY
     Route: 061
     Dates: start: 19950101
  7. DYAZIDE [Concomitant]
     Indication: HYPERTENSION
     Route: 048
     Dates: start: 20030101

REACTIONS (3)
  - DRUG ADMINISTRATION ERROR [None]
  - OSTEOARTHRITIS [None]
  - OSTEONECROSIS [None]
